FAERS Safety Report 22989999 (Version 5)
Quarter: 2024Q2

REPORT INFORMATION
  Report Type: Spontaneous
  Country: US (occurrence: US)
  Receive Date: 20230927
  Receipt Date: 20240404
  Transmission Date: 20240715
  Serious: Yes (Other)
  Sender: FDA-Public Use
  Company Number: US-REGENERON PHARMACEUTICALS, INC.-2023-115074

PATIENT
  Sex: Female

DRUGS (2)
  1. EYLEA HD [Suspect]
     Active Substance: AFLIBERCEPT
     Indication: Neovascular age-related macular degeneration
     Dosage: 8 MG, EVERY 4-5 WEEKS INTO RIGHT EYE (FORMULATION: HD VIAL)
     Dates: start: 20230906, end: 20230906
  2. EYLEA HD [Suspect]
     Active Substance: AFLIBERCEPT
     Dosage: 8 MG, EVERY 7-8 WEEKS INTO RIGHT EYE (FORMULATION: HD VIAL)
     Dates: start: 2023

REACTIONS (5)
  - Blindness transient [Recovered/Resolved]
  - Subretinal fluid [Unknown]
  - Retinal oedema [Unknown]
  - Non-infectious endophthalmitis [Recovered/Resolved]
  - Eye oedema [Unknown]

NARRATIVE: CASE EVENT DATE: 20230101
